FAERS Safety Report 19478674 (Version 1)
Quarter: 2021Q2

REPORT INFORMATION
  Report Type: Report from Study
  Country: US (occurrence: US)
  Receive Date: 20210630
  Receipt Date: 20210630
  Transmission Date: 20210717
  Serious: Yes (Hospitalization)
  Sender: FDA-Public Use
  Company Number: US-TAKEDA-US201927654

PATIENT
  Age: 67 Year
  Sex: Female

DRUGS (1)
  1. HUMAN NORMAL IMMUNOGLOBULIN; LIQUID [Suspect]
     Active Substance: HUMAN IMMUNOGLOBULIN G
     Indication: PRIMARY IMMUNODEFICIENCY SYNDROME
     Dosage: 45 GRAM, 1X A MONTH
     Route: 042

REACTIONS (6)
  - Hospitalisation [Unknown]
  - Inappropriate schedule of product administration [Unknown]
  - Product supply issue [Unknown]
  - COVID-19 [Unknown]
  - Infusion related reaction [Unknown]
  - Pruritus [Unknown]

NARRATIVE: CASE EVENT DATE: 201904
